FAERS Safety Report 9550444 (Version 1)
Quarter: 2013Q3

REPORT INFORMATION
  Report Type: Spontaneous
  Country: US (occurrence: US)
  Receive Date: 20130924
  Receipt Date: 20130924
  Transmission Date: 20140515
  Serious: No
  Sender: FDA-Public Use
  Company Number: US-SANOFI-AVENTIS-2013SA078355

PATIENT
  Sex: Female

DRUGS (1)
  1. AUBAGIO [Suspect]
     Dosage: TAKEN FROM: TWO MONTHS
     Route: 048
     Dates: end: 20130611

REACTIONS (3)
  - Nausea [Unknown]
  - Diarrhoea [Unknown]
  - Renal pain [Unknown]
